FAERS Safety Report 6635957-1 (Version None)
Quarter: 2010Q1

REPORT INFORMATION
  Report Type: 
  Country: None (occurrence: None)
  Receive Date: 20100316
  Receipt Date: 20100309
  Transmission Date: 20100710
  Serious: Yes (Hospitalization)
  Sender: FDA-Public Use
  Company Number: IT-BRISTOL-MYERS SQUIBB COMPANY-15008212

PATIENT
  Age: 84 Year
  Sex: Male

DRUGS (5)
  1. COUMADIN [Suspect]
     Indication: DEEP VEIN THROMBOSIS
     Dosage: RECEIVED THE LAST DOSE ON 28FEB2010
     Route: 048
     Dates: start: 20080820
  2. SOTALOL [Concomitant]
     Route: 048
  3. VASERETIC [Concomitant]
     Dosage: 1DF- 20MG+12.5MG ORAL TABS
     Route: 048
  4. NEXIUM [Concomitant]
     Dosage: FILM COATED ORAL TABS
     Route: 048
  5. TAVOR [Concomitant]

REACTIONS (3)
  - FALL [None]
  - LIMB INJURY [None]
  - SUBDURAL HAEMATOMA [None]
